FAERS Safety Report 14766660 (Version 12)
Quarter: 2019Q1

REPORT INFORMATION
  Report Type: Spontaneous
  Country: US (occurrence: US)
  Receive Date: 20180417
  Receipt Date: 20190213
  Transmission Date: 20190417
  Serious: No
  Sender: FDA-Public Use
  Company Number: US-ELI_LILLY_AND_COMPANY-US201804005766

PATIENT
  Age: 67 Year
  Sex: Female

DRUGS (18)
  1. FORTEO [Suspect]
     Active Substance: TERIPARATIDE
     Dosage: 20 UG, DAILY
     Route: 058
     Dates: end: 20180416
  2. BEPREVE [Concomitant]
     Active Substance: BEPOTASTINE BESILATE
     Indication: HYPERSENSITIVITY
     Dosage: 1-2/DAY
  3. ZYRTEC [Concomitant]
     Active Substance: CETIRIZINE HYDROCHLORIDE
     Indication: HEADACHE
     Dosage: UNK UNK, PRN
  4. VALACYCLOVIR HCL [Concomitant]
     Active Substance: VALACYCLOVIR HYDROCHLORIDE
     Indication: HERPES VIRUS INFECTION
     Dosage: 500 MG, BID
  5. LASIX [Concomitant]
     Active Substance: FUROSEMIDE
     Indication: FLUID RETENTION
     Dosage: 20 MG, DAILY
  6. PANTOPRAZOLE [Concomitant]
     Active Substance: PANTOPRAZOLE
     Indication: OESOPHAGITIS
     Dosage: 20 MG, PRN
  7. IBGARD [Concomitant]
     Indication: IRRITABLE BOWEL SYNDROME
     Dosage: 1 DF, DAILY
  8. ESTRADIOL. [Concomitant]
     Active Substance: ESTRADIOL
     Indication: PRODUCT USED FOR UNKNOWN INDICATION
     Dosage: 0.5 MG, DAILY
  9. FISH OIL                           /01682401/ [Concomitant]
     Indication: PRODUCT USED FOR UNKNOWN INDICATION
  10. FORTEO [Suspect]
     Active Substance: TERIPARATIDE
     Indication: OSTEOPOROSIS
     Dosage: 20 UG, DAILY
     Route: 058
     Dates: start: 20180402
  11. FORTEO [Suspect]
     Active Substance: TERIPARATIDE
     Dosage: 20 UG, DAILY, RESTARTED
     Route: 058
     Dates: start: 20180718
  12. FLUTICASONE. [Concomitant]
     Active Substance: FLUTICASONE
     Indication: HYPERSENSITIVITY
     Dosage: 50 UG, DAILY
  13. FAMOTIDINE. [Concomitant]
     Active Substance: FAMOTIDINE
     Indication: GASTROOESOPHAGEAL REFLUX DISEASE
     Dosage: 40 MG, BID
  14. ZYRTEC [Concomitant]
     Active Substance: CETIRIZINE HYDROCHLORIDE
     Indication: HYPERSENSITIVITY
     Dosage: 10 MG, DAILY
  15. PEPCID                             /00305201/ [Concomitant]
     Active Substance: ALUMINUM HYDROXIDE\MAGNESIUM CARBONATE
     Indication: GASTROOESOPHAGEAL REFLUX DISEASE
     Dosage: 40 MG, BID
  16. FORTEO [Suspect]
     Active Substance: TERIPARATIDE
     Dosage: 20 UG, DAILY
     Route: 058
  17. ACYCLOVIR                          /00587302/ [Concomitant]
     Indication: HERPES DERMATITIS
  18. ADVIL [Concomitant]
     Active Substance: IBUPROFEN
     Indication: PAIN

REACTIONS (29)
  - Lethargy [Unknown]
  - Pain in extremity [Unknown]
  - Pain [Unknown]
  - Injection site pain [Recovered/Resolved]
  - Injection site inflammation [Unknown]
  - Asthenia [Recovered/Resolved]
  - Myalgia [Unknown]
  - Injection site discolouration [Unknown]
  - Muscle spasms [Not Recovered/Not Resolved]
  - Nausea [Recovered/Resolved]
  - Dysgeusia [Unknown]
  - Arthralgia [Unknown]
  - Sleep disorder due to general medical condition, insomnia type [Unknown]
  - Injection site erythema [Recovered/Resolved]
  - Hypotension [Recovered/Resolved]
  - Abdominal distension [Not Recovered/Not Resolved]
  - Muscle strain [Recovering/Resolving]
  - Application site acne [Unknown]
  - Depressed mood [Unknown]
  - Chest discomfort [Not Recovered/Not Resolved]
  - Headache [Recovered/Resolved]
  - Arthralgia [Unknown]
  - Gastrooesophageal reflux disease [Not Recovered/Not Resolved]
  - Eructation [Recovering/Resolving]
  - Asthenia [Not Recovered/Not Resolved]
  - Nausea [Unknown]
  - Depression [Unknown]
  - Pain [Unknown]
  - Injection site erythema [Recovered/Resolved]

NARRATIVE: CASE EVENT DATE: 201804
